FAERS Safety Report 4268632-1 (Version None)
Quarter: 2004Q1

REPORT INFORMATION
  Report Type: 
  Country: None (occurrence: None)
  Receive Date: 20040108
  Receipt Date: 20031225
  Transmission Date: 20041129
  Serious: Yes (Hospitalization)
  Sender: FDA-Public Use
  Company Number: 2003-BP-07311NB

PATIENT
  Age: 75 Year
  Sex: Male

DRUGS (7)
  1. MICARDIS [Suspect]
     Indication: HYPERTENSION
     Dosage: 40 MG PO
     Route: 048
     Dates: start: 20030910, end: 20030918
  2. NORVASC [Concomitant]
  3. HARNAL [Concomitant]
  4. UNIPHYL [Concomitant]
  5. SINGULAIR [Concomitant]
  6. PROTECADIN [Concomitant]
  7. HOKUNALIN: TAPE (CP) [Concomitant]

REACTIONS (3)
  - CONDITION AGGRAVATED [None]
  - JAUNDICE [None]
  - LIVER DISORDER [None]
